FAERS Safety Report 5404092-2 (Version None)
Quarter: 2007Q3

REPORT INFORMATION
  Report Type: 
  Country: None (occurrence: None)
  Receive Date: 20070731
  Receipt Date: 20070719
  Transmission Date: 20080115
  Serious: Yes (Hospitalization, Other)
  Sender: FDA-Public Use
  Company Number: GXKR2007DK06343

PATIENT
  Sex: Male
  Weight: 3.4 kg

DRUGS (1)
  1. CITALOPRAM HYDROBROMIDE [Suspect]
     Dosage: TRANSPLACENTAL
     Route: 064

REACTIONS (5)
  - ASTHENIA [None]
  - DRUG EXPOSURE DURING PREGNANCY [None]
  - INFANTILE APNOEIC ATTACK [None]
  - NEONATAL DISORDER [None]
  - PALLOR [None]
